FAERS Safety Report 17871889 (Version 2)
Quarter: 2020Q2

REPORT INFORMATION
  Report Type: Spontaneous
  Country: US (occurrence: US)
  Receive Date: 20200608
  Receipt Date: 20200622
  Transmission Date: 20200714
  Serious: Yes (Other)
  Sender: FDA-Public Use
  Company Number: US-LUPIN PHARMACEUTICALS INC.-2020-02563

PATIENT
  Age: 49 Year
  Sex: Female
  Weight: 65.76 kg

DRUGS (4)
  1. OMEPRAZOLE. [Concomitant]
     Active Substance: OMEPRAZOLE
     Indication: PRODUCT USED FOR UNKNOWN INDICATION
     Dosage: UNK
     Route: 048
  2. BUPROPION HYDROCHLORIDE EXTENDED-RELEASE TABLETS USP, 150 MG [Suspect]
     Active Substance: BUPROPION HYDROCHLORIDE
     Dosage: 3 DOSAGE FORM, QD
     Route: 048
     Dates: start: 201812
  3. BUPROPION HYDROCHLORIDE EXTENDED-RELEASE TABLETS USP, 150 MG [Suspect]
     Active Substance: BUPROPION HYDROCHLORIDE
     Indication: MAJOR DEPRESSION
     Dosage: 1 DOSAGE FORM, QD
     Route: 048
     Dates: start: 2018
  4. BUPROPION HYDROCHLORIDE EXTENDED-RELEASE TABLETS USP, 150 MG [Suspect]
     Active Substance: BUPROPION HYDROCHLORIDE
     Dosage: 3 DOSAGE FORM, QD (BAD BATCH)
     Route: 048
     Dates: start: 20200508, end: 20200524

REACTIONS (8)
  - Food allergy [Unknown]
  - Feeling abnormal [Unknown]
  - Asthenia [Recovering/Resolving]
  - Product odour abnormal [Unknown]
  - Post concussion syndrome [Unknown]
  - Product quality issue [Unknown]
  - Product dose omission [Unknown]
  - Road traffic accident [Unknown]

NARRATIVE: CASE EVENT DATE: 201812
